FAERS Safety Report 24810000 (Version 1)
Quarter: 2025Q1

REPORT INFORMATION
  Report Type: Spontaneous
  Country: CZ (occurrence: CZ)
  Receive Date: 20250106
  Receipt Date: 20250106
  Transmission Date: 20250409
  Serious: Yes (Other)
  Sender: MYLAN
  Company Number: CZ-PFIZER INC-202400329301

PATIENT
  Age: 18 Year
  Sex: Female

DRUGS (14)
  1. VANCOMYCIN [Suspect]
     Active Substance: VANCOMYCIN
     Indication: Febrile neutropenia
     Route: 065
  2. PIPERACILLIN SODIUM\TAZOBACTAM SODIUM [Suspect]
     Active Substance: PIPERACILLIN SODIUM\TAZOBACTAM SODIUM
     Indication: Febrile neutropenia
     Route: 065
  3. LINEZOLID [Suspect]
     Active Substance: LINEZOLID
     Indication: Product used for unknown indication
     Route: 065
  4. AVIBACTAM SODIUM\CEFTAZIDIME [Suspect]
     Active Substance: AVIBACTAM SODIUM\CEFTAZIDIME
     Indication: Product used for unknown indication
     Route: 065
  5. FOSFOMYCIN [Suspect]
     Active Substance: FOSFOMYCIN
     Indication: Febrile neutropenia
     Route: 065
  6. MEROPENEM [Suspect]
     Active Substance: MEROPENEM
     Indication: Product used for unknown indication
     Route: 065
  7. COLISTIMETHATE SODIUM [Suspect]
     Active Substance: COLISTIMETHATE SODIUM
     Indication: Product used for unknown indication
     Route: 065
  8. AMIKACIN [Suspect]
     Active Substance: AMIKACIN
     Indication: Febrile neutropenia
     Route: 065
  9. FENTANYL [Concomitant]
     Active Substance: FENTANYL
     Route: 062
  10. FLUDARABINE [Concomitant]
     Active Substance: FLUDARABINE PHOSPHATE
     Indication: Acute undifferentiated leukaemia
     Route: 065
  11. DICLOFENAC [Concomitant]
     Active Substance: DICLOFENAC
     Indication: Analgesic therapy
     Route: 042
  12. IDARUBICIN HYDROCHLORIDE [Concomitant]
     Active Substance: IDARUBICIN HYDROCHLORIDE
     Indication: Acute undifferentiated leukaemia
     Route: 065
  13. CYTARABINE [Concomitant]
     Active Substance: CYTARABINE
     Indication: Acute undifferentiated leukaemia
     Route: 065
  14. VENETOCLAX [Concomitant]
     Active Substance: VENETOCLAX
     Indication: Acute undifferentiated leukaemia
     Route: 065

REACTIONS (8)
  - Pathogen resistance [Recovered/Resolved]
  - Pseudomonas infection [Recovered/Resolved]
  - Toxicity to various agents [Unknown]
  - Febrile neutropenia [Recovering/Resolving]
  - Nephropathy toxic [Unknown]
  - Thrombocytopenia [Unknown]
  - Ototoxicity [Unknown]
  - Drug ineffective [Unknown]
